FAERS Safety Report 13803183 (Version 1)
Quarter: 2017Q3

REPORT INFORMATION
  Report Type: Spontaneous
  Country: US (occurrence: US)
  Receive Date: 20170728
  Receipt Date: 20170728
  Transmission Date: 20171127
  Serious: Yes (Hospitalization, Other)
  Sender: FDA-Public Use
  Company Number: US-ELI_LILLY_AND_COMPANY-US201707007435

PATIENT
  Sex: Female

DRUGS (2)
  1. HUMALOG [Suspect]
     Active Substance: INSULIN LISPRO
     Indication: DIABETES MELLITUS
     Dosage: UNK, UNKNOWN
     Route: 065
     Dates: start: 2013
  2. PERCOCET [Concomitant]
     Active Substance: ACETAMINOPHEN\OXYCODONE HYDROCHLORIDE
     Indication: BACK PAIN

REACTIONS (10)
  - Hernia [Unknown]
  - Blood glucose increased [Unknown]
  - Decreased appetite [Unknown]
  - Blood glucose decreased [Unknown]
  - Dysuria [Unknown]
  - Faeces hard [Unknown]
  - Breast mass [Unknown]
  - Anal incontinence [Unknown]
  - Depression [Unknown]
  - Constipation [Unknown]

NARRATIVE: CASE EVENT DATE: 2014
